FAERS Safety Report 8577134-3 (Version None)
Quarter: 2012Q3

REPORT INFORMATION
  Report Type: 
  Country: None (occurrence: None)
  Receive Date: 20120807
  Receipt Date: 20120801
  Transmission Date: 20120928
  Serious: Yes (Death, Hospitalization)
  Sender: FDA-Public Use
  Company Number: JP-CELGENEUS-087-50794-11120807

PATIENT
  Sex: Male
  Weight: 59 kg

DRUGS (17)
  1. OMEGACIN [Concomitant]
     Route: 065
     Dates: start: 20111024, end: 20111101
  2. MAGLAX [Concomitant]
     Route: 065
     Dates: start: 20111013
  3. ELASPOL [Concomitant]
     Route: 065
  4. ACETAMINOPHEN [Concomitant]
     Route: 065
     Dates: start: 20111020
  5. ZITHROMAX [Concomitant]
     Route: 065
     Dates: start: 20111130, end: 20111130
  6. FIRSTCIN [Concomitant]
     Route: 065
     Dates: start: 20111115, end: 20111127
  7. SULFAMETHOXAZOLE AND TRIMETHOPRIM [Concomitant]
     Route: 065
     Dates: start: 20111127, end: 20111213
  8. ITRACONAZOLE [Concomitant]
     Route: 065
     Dates: start: 20111021, end: 20111130
  9. GANCICLOVIR [Concomitant]
     Route: 065
  10. CONIEL [Concomitant]
     Route: 065
     Dates: start: 20111117
  11. LEVOFLOXACIN [Concomitant]
     Route: 065
     Dates: start: 20111111, end: 20111115
  12. VIDAZA [Suspect]
     Indication: MYELODYSPLASTIC SYNDROME
     Dosage: 75 MILLIGRAM/SQ. METER
     Route: 041
     Dates: start: 20111014, end: 20111020
  13. MAXIPIME [Concomitant]
     Route: 065
     Dates: end: 20111015
  14. AMLODIPINE [Concomitant]
     Route: 065
     Dates: start: 20111122, end: 20111130
  15. FIRSTCIN [Concomitant]
     Route: 065
     Dates: start: 20111016, end: 20111024
  16. MAXIPIME [Concomitant]
     Dates: start: 20111102, end: 20111107
  17. OMEPRAZOLE [Concomitant]
     Route: 065
     Dates: start: 20111012, end: 20111130

REACTIONS (3)
  - CARDIAC FAILURE [None]
  - ATRIAL FIBRILLATION [None]
  - PNEUMONIA [None]
